FAERS Safety Report 7842191-6 (Version None)
Quarter: 2011Q4

REPORT INFORMATION
  Report Type: 
  Country: None (occurrence: None)
  Receive Date: 20111024
  Receipt Date: 20111024
  Transmission Date: 20120403
  Serious: Yes (Hospitalization)
  Sender: FDA-Public Use
  Company Number: None

PATIENT
  Sex: Female

DRUGS (1)
  1. NEURONTIN [Suspect]
     Indication: PAIN MANAGEMENT
     Dosage: 300 3X DAILY
     Dates: start: 20100101, end: 20110301

REACTIONS (8)
  - DIZZINESS [None]
  - TRANSIENT ISCHAEMIC ATTACK [None]
  - TOXICITY TO VARIOUS AGENTS [None]
  - LOSS OF CONSCIOUSNESS [None]
  - INSOMNIA [None]
  - FALL [None]
  - AMNESIA [None]
  - PERSONALITY CHANGE [None]
